FAERS Safety Report 24781408 (Version 2)
Quarter: 2025Q1

REPORT INFORMATION
  Report Type: Spontaneous
  Country: US (occurrence: US)
  Receive Date: 20241227
  Receipt Date: 20250122
  Transmission Date: 20250409
  Serious: Yes (Congenital Anomaly, Other)
  Sender: UCB
  Company Number: US-UCBSA-2024066877

PATIENT
  Weight: 3.015 kg

DRUGS (2)
  1. CIMZIA [Suspect]
     Active Substance: CERTOLIZUMAB PEGOL
     Indication: Product used for unknown indication
  2. COSENTYX [Concomitant]
     Active Substance: SECUKINUMAB
     Indication: Product used for unknown indication
     Dates: end: 20230518

REACTIONS (2)
  - Congenital skin dimples [Not Recovered/Not Resolved]
  - Maternal exposure during pregnancy [Unknown]

NARRATIVE: CASE EVENT DATE: 20240223
